FAERS Safety Report 23819991 (Version 1)
Quarter: 2024Q2

REPORT INFORMATION
  Report Type: Spontaneous
  Country: US (occurrence: US)
  Receive Date: 20240506
  Receipt Date: 20240506
  Transmission Date: 20240715
  Serious: Yes (Hospitalization, Other)
  Sender: FDA-Public Use
  Company Number: US-Accord-422679

PATIENT
  Age: 20 Year
  Sex: Female

DRUGS (28)
  1. BUPROPION HYDROCHLORIDE [Interacting]
     Active Substance: BUPROPION HYDROCHLORIDE
     Indication: Post-traumatic stress disorder
  2. CLOZAPINE [Interacting]
     Active Substance: CLOZAPINE
     Indication: Post-traumatic stress disorder
     Dosage: DAILY
  3. TOPIRAMATE [Interacting]
     Active Substance: TOPIRAMATE
     Indication: Borderline personality disorder
  4. CHLORPROMAZINE [Interacting]
     Active Substance: CHLORPROMAZINE
     Indication: Major depression
     Dosage: THREE TIMES A DAY
  5. LAMOTRIGINE [Interacting]
     Active Substance: LAMOTRIGINE
     Indication: Borderline personality disorder
  6. CITALOPRAM [Concomitant]
     Active Substance: CITALOPRAM\CITALOPRAM HYDROBROMIDE
     Indication: Major depression
  7. LITHIUM [Concomitant]
     Active Substance: LITHIUM
     Indication: Borderline personality disorder
  8. LITHIUM [Concomitant]
     Active Substance: LITHIUM
     Indication: Post-traumatic stress disorder
  9. LITHIUM [Concomitant]
     Active Substance: LITHIUM
     Indication: Major depression
  10. LITHIUM [Concomitant]
     Active Substance: LITHIUM
     Indication: Anxiety disorder
  11. CITALOPRAM [Concomitant]
     Active Substance: CITALOPRAM\CITALOPRAM HYDROBROMIDE
     Indication: Anxiety disorder
  12. CITALOPRAM [Concomitant]
     Active Substance: CITALOPRAM\CITALOPRAM HYDROBROMIDE
     Indication: Borderline personality disorder
  13. CITALOPRAM [Concomitant]
     Active Substance: CITALOPRAM\CITALOPRAM HYDROBROMIDE
     Indication: Post-traumatic stress disorder
  14. TOPIRAMATE [Interacting]
     Active Substance: TOPIRAMATE
     Indication: Post-traumatic stress disorder
  15. TOPIRAMATE [Interacting]
     Active Substance: TOPIRAMATE
     Indication: Anxiety disorder
  16. TOPIRAMATE [Interacting]
     Active Substance: TOPIRAMATE
     Indication: Major depression
  17. LAMOTRIGINE [Interacting]
     Active Substance: LAMOTRIGINE
     Indication: Anxiety disorder
  18. LAMOTRIGINE [Interacting]
     Active Substance: LAMOTRIGINE
     Indication: Post-traumatic stress disorder
  19. LAMOTRIGINE [Interacting]
     Active Substance: LAMOTRIGINE
     Indication: Major depression
  20. CLOZAPINE [Interacting]
     Active Substance: CLOZAPINE
     Indication: Borderline personality disorder
     Dosage: DAILY
  21. CLOZAPINE [Interacting]
     Active Substance: CLOZAPINE
     Indication: Major depression
     Dosage: DAILY
  22. CLOZAPINE [Interacting]
     Active Substance: CLOZAPINE
     Indication: Anxiety disorder
     Dosage: DAILY
  23. CHLORPROMAZINE [Interacting]
     Active Substance: CHLORPROMAZINE
     Indication: Anxiety disorder
     Dosage: THREE TIMES A DAY
  24. CHLORPROMAZINE [Interacting]
     Active Substance: CHLORPROMAZINE
     Indication: Borderline personality disorder
     Dosage: THREE TIMES A DAY
  25. CHLORPROMAZINE [Interacting]
     Active Substance: CHLORPROMAZINE
     Indication: Post-traumatic stress disorder
     Dosage: THREE TIMES A DAY
  26. BUPROPION HYDROCHLORIDE [Interacting]
     Active Substance: BUPROPION HYDROCHLORIDE
     Indication: Anxiety disorder
  27. BUPROPION HYDROCHLORIDE [Interacting]
     Active Substance: BUPROPION HYDROCHLORIDE
     Indication: Borderline personality disorder
  28. BUPROPION HYDROCHLORIDE [Interacting]
     Active Substance: BUPROPION HYDROCHLORIDE
     Indication: Major depression

REACTIONS (5)
  - Agranulocytosis [Recovered/Resolved]
  - Neutropenic sepsis [Recovered/Resolved]
  - Thrombocytosis [Recovered/Resolved]
  - Drug interaction [Recovered/Resolved]
  - Anaemia [Unknown]
